FAERS Safety Report 8176561-6 (Version None)
Quarter: 2012Q1

REPORT INFORMATION
  Report Type: 
  Country: None (occurrence: None)
  Receive Date: 20120228
  Receipt Date: 20120210
  Transmission Date: 20120608
  Serious: Yes (Hospitalization)
  Sender: FDA-Public Use
  Company Number: JPI-P-019826

PATIENT
  Age: 39 Year
  Sex: Female

DRUGS (3)
  1. XYREM [Suspect]
     Indication: NARCOLEPSY
     Dosage: SEE IMAGE
     Route: 048
     Dates: start: 20111228, end: 20120101
  2. XYREM [Suspect]
     Indication: NARCOLEPSY
     Dosage: SEE IMAGE
     Route: 048
     Dates: start: 20120201
  3. XYREM [Suspect]
     Indication: NARCOLEPSY
     Dosage: SEE IMAGE
     Route: 048
     Dates: start: 20080804

REACTIONS (2)
  - HYSTERECTOMY [None]
  - BENIGN UTERINE NEOPLASM [None]
